FAERS Safety Report 8470398-6 (Version None)
Quarter: 2012Q2

REPORT INFORMATION
  Report Type: 
  Country: None (occurrence: None)
  Receive Date: 20120627
  Receipt Date: 20120619
  Transmission Date: 20120825
  Serious: Yes (Other)
  Sender: FDA-Public Use
  Company Number: US-SANOFI-AVENTIS-2012SA034569

PATIENT
  Age: 88 Year
  Sex: Female
  Weight: 90.91 kg

DRUGS (4)
  1. LANTUS [Suspect]
     Dosage: DOSE: 35 U- AM; 45 U- PM
     Route: 058
     Dates: start: 20070101
  2. CIPROFLOXACIN [Concomitant]
     Indication: URINARY TRACT INFECTION
  3. NEBIVOLOL [Concomitant]
  4. SOLOSTAR [Suspect]
     Dates: start: 20070101

REACTIONS (8)
  - WEIGHT INCREASED [None]
  - NERVOUSNESS [None]
  - VISION BLURRED [None]
  - INCORRECT STORAGE OF DRUG [None]
  - TREMOR [None]
  - FLUID RETENTION [None]
  - LOCALISED INFECTION [None]
  - BLOOD GLUCOSE INCREASED [None]
